FAERS Safety Report 7816899-2 (Version None)
Quarter: 2011Q4

REPORT INFORMATION
  Report Type: 
  Country: None (occurrence: None)
  Receive Date: 20111017
  Receipt Date: 20111012
  Transmission Date: 20120403
  Serious: Yes (Other)
  Sender: FDA-Public Use
  Company Number: US-PFIZER INC-2011244120

PATIENT
  Sex: Female
  Weight: 58.957 kg

DRUGS (2)
  1. DIFLUCAN [Suspect]
     Indication: ANTIFUNGAL TREATMENT
     Dosage: UNK, 1X/DAY
     Route: 048
     Dates: start: 20111005, end: 20111006
  2. ALLEGRA D 24 HOUR [Concomitant]
     Indication: HYPERSENSITIVITY
     Dosage: UNK, AS NEEDED

REACTIONS (1)
  - HYPERSENSITIVITY [None]
